FAERS Safety Report 4559816-3 (Version None)
Quarter: 2005Q1

REPORT INFORMATION
  Report Type: 
  Country: None (occurrence: None)
  Receive Date: 20050124
  Receipt Date: 20040510
  Transmission Date: 20050727
  Serious: Yes (Disabling, Other)
  Sender: FDA-Public Use
  Company Number: US-MERCK-0405USA00618

PATIENT
  Age: 78 Year
  Sex: Male
  Weight: 105 kg

DRUGS (3)
  1. VIOXX [Suspect]
     Indication: ARTHRALGIA
     Route: 048
     Dates: start: 20001001, end: 20001015
  2. HUMULIN N [Concomitant]
     Indication: DIABETES MELLITUS
     Route: 065
  3. GLYBURIDE [Concomitant]
     Indication: DIABETES MELLITUS
     Route: 065

REACTIONS (7)
  - CARDIAC FAILURE CONGESTIVE [None]
  - CATARACT [None]
  - HYPERTENSION [None]
  - MACULAR HOLE [None]
  - MYOCARDIAL INFARCTION [None]
  - RENAL DISORDER [None]
  - SLEEP APNOEA SYNDROME [None]
